FAERS Safety Report 20820968 (Version 1)
Quarter: 2022Q2

REPORT INFORMATION
  Report Type: Spontaneous
  Country: US (occurrence: None)
  Receive Date: 20220512
  Receipt Date: 20220512
  Transmission Date: 20220721
  Serious: Yes (Death)
  Sender: FDA-Public Use
  Company Number: None

PATIENT

DRUGS (13)
  1. TEMOZOLOMIDE [Suspect]
     Active Substance: TEMOZOLOMIDE
     Indication: Brain neoplasm malignant
     Dosage: FREQUENCY : DAILY;?
     Route: 048
  2. TEMOZOLOMIDE [Suspect]
     Active Substance: TEMOZOLOMIDE
     Dosage: FREQUENCY : DAILY;?
     Route: 048
  3. levemir Flex Touch Pen [Concomitant]
  4. Dexamethasone 2mg [Concomitant]
  5. stimulant laxative 8.6-50 [Concomitant]
  6. ONDANSETRON [Concomitant]
     Active Substance: ONDANSETRON
  7. CEFDINIR [Concomitant]
     Active Substance: CEFDINIR
  8. fish oil 1000 [Concomitant]
  9. keppra 500 [Concomitant]
  10. mag-oxide 400 [Concomitant]
  11. PANTOPRAZOLE SODIUM [Concomitant]
     Active Substance: PANTOPRAZOLE SODIUM
  12. pravastatin 20 [Concomitant]
  13. warfarin 2.5 [Concomitant]

REACTIONS (1)
  - Cerebrovascular accident [None]
